FAERS Safety Report 8439470-0 (Version None)
Quarter: 2012Q2

REPORT INFORMATION
  Report Type: 
  Country: None (occurrence: None)
  Receive Date: 20120615
  Receipt Date: 20120605
  Transmission Date: 20120825
  Serious: Yes (Other)
  Sender: FDA-Public Use
  Company Number: US-JNJFOC-20120603622

PATIENT
  Sex: Female
  Weight: 97 kg

DRUGS (3)
  1. ACETAMINOPHEN [Concomitant]
     Indication: PREMEDICATION
     Dates: start: 20080923
  2. ZYRTEC [Concomitant]
     Indication: PREMEDICATION
     Dates: start: 20080923
  3. REMICADE [Suspect]
     Indication: RHEUMATOID ARTHRITIS
     Route: 042
     Dates: start: 20080923

REACTIONS (3)
  - VOMITING [None]
  - PYREXIA [None]
  - DIARRHOEA [None]
